FAERS Safety Report 16824096 (Version 2)
Quarter: 2019Q4

REPORT INFORMATION
  Report Type: Spontaneous
  Country: JP (occurrence: JP)
  Receive Date: 20190918
  Receipt Date: 20191008
  Transmission Date: 20200122
  Serious: Yes (Hospitalization)
  Sender: FDA-Public Use
  Company Number: JP-GUERBET-JP-20190149

PATIENT
  Age: 7 Decade
  Sex: Female

DRUGS (2)
  1. LIPIODOL [Suspect]
     Active Substance: ETHIODIZED OIL
     Indication: THERAPEUTIC EMBOLISATION
     Route: 013
  2. ALCOHOL. [Concomitant]
     Active Substance: ALCOHOL
     Indication: THERAPEUTIC EMBOLISATION
     Route: 013

REACTIONS (4)
  - Product use in unapproved indication [Recovering/Resolving]
  - Hydronephrosis [Recovering/Resolving]
  - Retroperitoneal abscess [Recovering/Resolving]
  - Tumour embolism [Recovering/Resolving]
